FAERS Safety Report 4464652-2 (Version None)
Quarter: 2004Q3

REPORT INFORMATION
  Report Type: 
  Country: None (occurrence: None)
  Receive Date: 20040928
  Receipt Date: 20040915
  Transmission Date: 20050211
  Serious: Yes (Hospitalization)
  Sender: FDA-Public Use
  Company Number: 2004060107

PATIENT
  Age: 92 Year
  Sex: Female

DRUGS (6)
  1. ZOLOFT [Suspect]
     Indication: ILL-DEFINED DISORDER
     Dosage: 50 MG (50 MG, 1 IN 1 D), ORAL
     Route: 048
     Dates: start: 20040701, end: 20040712
  2. BISOPROLOL FUMARATE [Concomitant]
  3. VASOBRAL (CAFFEINE, DIHYDROERGOCRYPTINE MESILATE) [Concomitant]
  4. LORAZEPAM [Concomitant]
  5. NITROGLYCERIN [Concomitant]
  6. ADRAFINIL (ADRAFINIL) [Concomitant]

REACTIONS (12)
  - ATAXIA [None]
  - BLOOD CREATINE PHOSPHOKINASE INCREASED [None]
  - CEREBRAL ATROPHY [None]
  - COMPUTERISED TOMOGRAM ABNORMAL [None]
  - DISORIENTATION [None]
  - FALL [None]
  - GENERAL PHYSICAL HEALTH DETERIORATION [None]
  - HAEMATOCRIT ABNORMAL [None]
  - HEADACHE [None]
  - HYPONATRAEMIA [None]
  - PROTEIN TOTAL INCREASED [None]
  - VOMITING [None]
